FAERS Safety Report 8895553 (Version 2)
Quarter: 2012Q4

REPORT INFORMATION
  Report Type: 
  Country: US (occurrence: US)
  Receive Date: 20121108
  Receipt Date: 20121217
  Transmission Date: 20130627
  Serious: Yes (Hospitalization)
  Sender: FDA-Public Use
  Company Number: US-GLAXOSMITHKLINE-A1000303A

PATIENT
  Age: 57 Year
  Sex: Male
  Weight: 88.6 kg

DRUGS (1)
  1. MELPHALAN [Suspect]
     Indication: STEM CELL TRANSPLANT
     Dosage: 100MGM2 Per day
     Route: 042
     Dates: start: 20120228, end: 20120229

REACTIONS (7)
  - Haemorrhage [Unknown]
  - Back pain [Unknown]
  - Soft tissue mass [Unknown]
  - Pulmonary mass [Unknown]
  - Hilar lymphadenopathy [Unknown]
  - Effusion [Unknown]
  - Off label use [Unknown]
